FAERS Safety Report 11913614 (Version 1)
Quarter: 2016Q1

REPORT INFORMATION
  Report Type: Spontaneous
  Country: US (occurrence: US)
  Receive Date: 20160113
  Receipt Date: 20160113
  Transmission Date: 20160526
  Serious: No
  Sender: FDA-Public Use
  Company Number: US-PFIZER INC-2015462549

PATIENT
  Age: 92 Year
  Sex: Female
  Weight: 68.4 kg

DRUGS (1)
  1. TOVIAZ [Suspect]
     Active Substance: FESOTERODINE FUMARATE
     Dosage: UNK
     Dates: start: 201512

REACTIONS (3)
  - Oropharyngeal pain [Unknown]
  - Nasal dryness [Unknown]
  - Dyspnoea [Unknown]
